FAERS Safety Report 8402273-7 (Version None)
Quarter: 2012Q2

REPORT INFORMATION
  Report Type: 
  Country: None (occurrence: None)
  Receive Date: 20120525
  Receipt Date: 20120521
  Transmission Date: 20120825
  Serious: Yes (Hospitalization)
  Sender: FDA-Public Use
  Company Number: 2012SP021154

PATIENT
  Age: 34 Year
  Sex: Female

DRUGS (2)
  1. SYNAREL [Suspect]
     Indication: PRODUCT USED FOR UNKNOWN INDICATION
     Dosage: NAS
     Route: 045
     Dates: start: 20090101, end: 20090101
  2. PUREGON (FOLLITROPIN BETA /01348901/) [Suspect]
     Indication: ENDOMETRIOSIS
     Dosage: SC
     Route: 058
     Dates: start: 20090101, end: 20090501

REACTIONS (2)
  - CEREBRAL INFARCTION [None]
  - VASCULAR DISSECTION [None]
